FAERS Safety Report 6655861-2 (Version None)
Quarter: 2010Q1

REPORT INFORMATION
  Report Type: 
  Country: None (occurrence: None)
  Receive Date: 20100329
  Receipt Date: 20100325
  Transmission Date: 20100710
  Serious: Yes (Death)
  Sender: FDA-Public Use
  Company Number: BR-ROCHE-693449

PATIENT
  Age: 36 Year
  Sex: Male

DRUGS (1)
  1. RIVOTRIL [Suspect]
     Indication: INTENTIONAL DRUG MISUSE
     Route: 065

REACTIONS (3)
  - MEDICATION ERROR [None]
  - OVERDOSE [None]
  - SEDATION [None]
